FAERS Safety Report 12891318 (Version 3)
Quarter: 2016Q4

REPORT INFORMATION
  Report Type: Spontaneous
  Country: US (occurrence: US)
  Receive Date: 20161027
  Receipt Date: 20161122
  Transmission Date: 20170207
  Serious: Yes (Other)
  Sender: FDA-Public Use
  Company Number: US-CELGENEUS-USA-2016105455

PATIENT
  Sex: Female

DRUGS (1)
  1. REVLIMID [Suspect]
     Active Substance: LENALIDOMIDE
     Indication: MYELODYSPLASTIC SYNDROME
     Dosage: 10 MILLIGRAM
     Route: 048
     Dates: start: 20130802

REACTIONS (15)
  - Diarrhoea [Unknown]
  - Disturbance in attention [Unknown]
  - Fatigue [Unknown]
  - Ear pain [Unknown]
  - Insomnia [Unknown]
  - Peripheral swelling [Unknown]
  - Libido decreased [Unknown]
  - Platelet count decreased [Unknown]
  - Restless legs syndrome [Unknown]
  - Hypoaesthesia [Unknown]
  - Throat irritation [Unknown]
  - Nasal congestion [Unknown]
  - Hypoacusis [Unknown]
  - Ear discomfort [Unknown]
  - Red blood cell count decreased [Unknown]
